FAERS Safety Report 8136409-2 (Version None)
Quarter: 2012Q1

REPORT INFORMATION
  Report Type: 
  Country: None (occurrence: None)
  Receive Date: 20120214
  Receipt Date: 20120210
  Transmission Date: 20120608
  Serious: Yes (Death)
  Sender: FDA-Public Use
  Company Number: JP-B.I. PHARMACEUTICALS,INC./RIDGEFIELD-2012-BP-01998NB

PATIENT
  Age: 85 Year
  Sex: Male

DRUGS (2)
  1. ARICEPT [Concomitant]
     Route: 065
  2. PRADAXA [Suspect]
     Indication: ATRIAL FIBRILLATION
     Dosage: 110 MG
     Route: 048
     Dates: start: 20110615, end: 20111101

REACTIONS (1)
  - CEREBRAL HAEMORRHAGE [None]
